FAERS Safety Report 7114156-3 (Version None)
Quarter: 2010Q4

REPORT INFORMATION
  Report Type: 
  Country: None (occurrence: None)
  Receive Date: 20101119
  Receipt Date: 20101115
  Transmission Date: 20110411
  Serious: Yes (Other)
  Sender: FDA-Public Use
  Company Number: US-PFIZER INC-2010150587

PATIENT

DRUGS (1)
  1. R-GENE [Suspect]
     Dosage: UNK

REACTIONS (2)
  - BRONCHOSPASM [None]
  - DYSPNOEA [None]
